FAERS Safety Report 5005294-X (Version None)
Quarter: 2006Q2

REPORT INFORMATION
  Report Type: 
  Country: None (occurrence: None)
  Receive Date: 20060518
  Receipt Date: 20060424
  Transmission Date: 20061013
  Serious: Yes (Hospitalization)
  Sender: FDA-Public Use
  Company Number: FR-GLAXOSMITHKLINE-B0421026A

PATIENT
  Age: 65 Year
  Sex: Female
  Weight: 65 kg

DRUGS (7)
  1. ZOPHREN [Suspect]
     Dosage: 8MG PER DAY
     Route: 042
     Dates: start: 20060215, end: 20060215
  2. POLARAMINE [Suspect]
     Dosage: 5MG PER DAY
     Route: 042
     Dates: start: 20060215, end: 20060215
  3. CARBOPLATINE [Suspect]
     Indication: OVARIAN CANCER
     Dosage: 550MG PER DAY
     Route: 042
     Dates: start: 20060215, end: 20060215
  4. ZANTAC [Concomitant]
     Dosage: 50MG PER DAY
     Route: 042
     Dates: start: 20060215, end: 20060215
  5. TAXOL [Concomitant]
     Indication: OVARIAN CANCER
     Dosage: 300MG PER DAY
     Route: 042
     Dates: start: 20060215, end: 20060215
  6. SOLU-MEDROL [Concomitant]
     Dosage: 120MG PER DAY
     Route: 042
     Dates: start: 20060215, end: 20060215
  7. LEVOTHYROX [Concomitant]
     Indication: HYPOTHYROIDISM
     Dosage: 75MCG UNKNOWN
     Route: 048

REACTIONS (5)
  - DERMATITIS EXFOLIATIVE [None]
  - DYSPNOEA [None]
  - HYPOTENSION [None]
  - LOSS OF CONSCIOUSNESS [None]
  - MALAISE [None]
